FAERS Safety Report 7964846-5 (Version None)
Quarter: 2011Q4

REPORT INFORMATION
  Report Type: 
  Country: None (occurrence: None)
  Receive Date: 20111208
  Receipt Date: 20111129
  Transmission Date: 20120403
  Serious: Yes (Hospitalization)
  Sender: FDA-Public Use
  Company Number: PHHY2011MX105502

PATIENT
  Age: 85 Year
  Sex: Female

DRUGS (12)
  1. JANUMET [Concomitant]
     Dosage: 1 DF, UNK
     Dates: start: 20081101
  2. TOLTERODINE TARTRATE [Concomitant]
     Dosage: 4 MG, UNK
     Dates: start: 20081101
  3. MIACALCIN [Concomitant]
     Dosage: 2 APPLICATION DAILY
     Dates: start: 20111101
  4. MEMANTINE HYDROCHLORIDE [Concomitant]
     Dosage: 10 MG, UNK
     Dates: start: 20101101
  5. SERTRALINE HYDROCHLORIDE [Concomitant]
     Dosage: 1 /2 TABLET (500 MG) PER DAY
     Dates: start: 20081101
  6. AKINETON [Concomitant]
     Dosage: 1 /2 TABLET
     Dates: start: 20081101
  7. THIOCTACID [Concomitant]
     Dosage: 600 MG, UNK
     Dates: start: 20081101
  8. LYRICA [Concomitant]
     Dosage: 75 MG, UNK
     Dates: start: 20081101
  9. IRBESARTAN AND HYDROCHLOROTHIAZIDE [Concomitant]
     Indication: BLOOD PRESSURE
     Dosage: 1 DF/ DAY
     Dates: start: 20061101
  10. CARBAMAZEPINE [Concomitant]
     Dosage: 200 MG, UNK
     Dates: start: 20081101
  11. RASILEZ [Suspect]
     Indication: HYPERTENSION
     Dosage: 150 MG PER DAY
     Dates: start: 20090501
  12. CALCIUM [Concomitant]
     Dosage: 2 TABLETS (500 MG)
     Dates: start: 20081101

REACTIONS (4)
  - MUSCULOSKELETAL CHEST PAIN [None]
  - SPINAL FRACTURE [None]
  - BACK PAIN [None]
  - PAIN IN EXTREMITY [None]
